FAERS Safety Report 4798367-8 (Version None)
Quarter: 2005Q4

REPORT INFORMATION
  Report Type: 
  Country: None (occurrence: None)
  Receive Date: 20051014
  Receipt Date: 20051011
  Transmission Date: 20060501
  Serious: Yes (Hospitalization)
  Sender: FDA-Public Use
  Company Number: 200519055GDDC

PATIENT
  Age: 81 Year
  Sex: Male

DRUGS (1)
  1. RIFAMPIN AND ISONIAZID [Suspect]
     Dosage: DOSE: UNK

REACTIONS (1)
  - LIVER DISORDER [None]
